FAERS Safety Report 17628399 (Version 2)
Quarter: 2020Q4

REPORT INFORMATION
  Report Type: Spontaneous
  Country: JP (occurrence: JP)
  Receive Date: 20200406
  Receipt Date: 20201114
  Transmission Date: 20210113
  Serious: Yes (Hospitalization)
  Sender: FDA-Public Use
  Company Number: JP-AMGEN-JPNSP2018137053

PATIENT
  Age: 53 Year
  Sex: Female

DRUGS (10)
  1. G-LASTA [Suspect]
     Active Substance: PEGFILGRASTIM
     Indication: PRODUCT USED FOR UNKNOWN INDICATION
     Dosage: 3.6 MG, 1X/3 WEEKS
     Route: 058
     Dates: start: 20180806
  2. G-LASTA [Suspect]
     Active Substance: PEGFILGRASTIM
     Dosage: 3.6 MG, 1X/3 WEEKS
     Route: 058
     Dates: start: 20180827
  3. CYCLOPHOSPHAMIDE. [Concomitant]
     Active Substance: CYCLOPHOSPHAMIDE
     Dosage: 600 MG/M2, 1X/3 WEEKS
     Route: 042
     Dates: start: 20180921
  4. CYCLOPHOSPHAMIDE. [Concomitant]
     Active Substance: CYCLOPHOSPHAMIDE
     Dosage: 600 MG/M2, 1X/3 WEEKS
     Route: 042
     Dates: start: 20180824
  5. G-LASTA [Suspect]
     Active Substance: PEGFILGRASTIM
     Dosage: 3.6 MILLIGRAM
     Route: 058
     Dates: start: 20180806
  6. DOCETAXEL. [Concomitant]
     Active Substance: DOCETAXEL
     Indication: BREAST CANCER
     Dosage: 75 MG/M2, 1X/3 WEEKS
     Route: 042
     Dates: start: 20180803
  7. DOCETAXEL. [Concomitant]
     Active Substance: DOCETAXEL
     Dosage: 75 MG/M2, 1X/3 WEEKS
     Route: 042
     Dates: start: 20180921
  8. G-LASTA [Suspect]
     Active Substance: PEGFILGRASTIM
     Dosage: 3.6 MILLIGRAM
     Route: 058
     Dates: start: 20180827
  9. DOCETAXEL. [Concomitant]
     Active Substance: DOCETAXEL
     Dosage: 75 MG/M2, 1X/3 WEEKS
     Route: 042
     Dates: start: 20180824
  10. CYCLOPHOSPHAMIDE. [Concomitant]
     Active Substance: CYCLOPHOSPHAMIDE
     Indication: BREAST CANCER
     Dosage: 600 MG/M2, 1X/3 WEEKS
     Route: 042
     Dates: start: 20180803

REACTIONS (3)
  - Urticaria [Recovering/Resolving]
  - Neutrophil count increased [Recovered/Resolved]
  - White blood cell count increased [Recovering/Resolving]

NARRATIVE: CASE EVENT DATE: 20180901
